FAERS Safety Report 8132347-X (Version None)
Quarter: 2012Q1

REPORT INFORMATION
  Report Type: 
  Country: None (occurrence: None)
  Receive Date: 20120213
  Receipt Date: 20120201
  Transmission Date: 20120608
  Serious: Yes (Hospitalization)
  Sender: FDA-Public Use
  Company Number: FR-JNJFOC-20120203330

PATIENT
  Age: 65 Year
  Sex: Male

DRUGS (28)
  1. REMICADE [Suspect]
     Route: 042
     Dates: start: 20090821
  2. REMICADE [Suspect]
     Route: 042
     Dates: start: 20100901
  3. REMICADE [Suspect]
     Route: 042
     Dates: start: 20110329
  4. REMICADE [Suspect]
     Route: 042
     Dates: start: 20110920
  5. REMICADE [Suspect]
     Route: 042
     Dates: start: 20081113
  6. REMICADE [Suspect]
     Route: 042
     Dates: start: 20100623
  7. REMICADE [Suspect]
     Route: 042
     Dates: start: 20090430
  8. REMICADE [Suspect]
     Route: 042
     Dates: start: 20091210
  9. NEXIUM [Concomitant]
  10. REMICADE [Suspect]
     Route: 042
     Dates: start: 20110607
  11. REMICADE [Suspect]
     Route: 042
     Dates: start: 20090107
  12. REMICADE [Suspect]
     Route: 042
     Dates: start: 20081016
  13. REMICADE [Suspect]
     Route: 042
     Dates: start: 20091013
  14. ASPIRIN [Concomitant]
  15. FOSAVANCE [Concomitant]
  16. REMICADE [Suspect]
     Route: 042
     Dates: start: 20100414
  17. FIXICAL [Concomitant]
  18. EXFORGE [Concomitant]
  19. REMICADE [Suspect]
     Indication: ANKYLOSING SPONDYLITIS
     Route: 042
     Dates: start: 20090626
  20. REMICADE [Suspect]
     Route: 042
     Dates: start: 20100211
  21. REMICADE [Suspect]
     Route: 042
     Dates: start: 20101110
  22. REMICADE [Suspect]
     Route: 042
     Dates: start: 20110119
  23. REMICADE [Suspect]
     Route: 042
     Dates: start: 20090303
  24. REMICADE [Suspect]
     Route: 042
     Dates: start: 20081002
  25. REMICADE [Suspect]
     Route: 042
     Dates: start: 20111129
  26. REMICADE [Suspect]
     Route: 042
     Dates: start: 20120102
  27. NEBIVOLOL HCL [Concomitant]
  28. ATORVASTATIN [Concomitant]

REACTIONS (2)
  - EOSINOPHILIA [None]
  - ECZEMA NUMMULAR [None]
